FAERS Safety Report 4715970-1 (Version None)
Quarter: 2005Q3

REPORT INFORMATION
  Report Type: 
  Country: None (occurrence: None)
  Receive Date: 20050718
  Receipt Date: 20050406
  Transmission Date: 20060218
  Serious: Yes (Hospitalization)
  Sender: FDA-Public Use
  Company Number: US-MERCK-0504USA01082

PATIENT
  Age: 61 Year
  Sex: Female
  Weight: 76 kg

DRUGS (12)
  1. VIOXX [Suspect]
     Indication: INTERVERTEBRAL DISC DISORDER
     Route: 048
     Dates: start: 20030401, end: 20040930
  2. NAPROXEN [Concomitant]
     Indication: INTERVERTEBRAL DISC DISORDER
     Route: 065
     Dates: start: 20010101, end: 20030101
  3. PREMARIN [Concomitant]
     Indication: HOT FLUSH
     Route: 065
     Dates: start: 19960101, end: 20030101
  4. PREMARIN [Concomitant]
     Indication: MENOPAUSE
     Route: 065
     Dates: start: 19960101, end: 20030101
  5. PAXIL [Concomitant]
     Indication: DEPRESSION
     Route: 065
     Dates: start: 19990101
  6. CELEXA [Concomitant]
     Indication: DEPRESSION
     Route: 065
     Dates: start: 19990101
  7. EFFEXOR [Concomitant]
     Indication: MENOPAUSAL SYMPTOMS
     Route: 065
     Dates: start: 19990101
  8. ATIVAN [Concomitant]
     Indication: DEPRESSION
     Route: 065
     Dates: start: 19990101
  9. ATIVAN [Concomitant]
     Indication: SLEEP DISORDER
     Route: 065
     Dates: start: 19990101
  10. XANAX [Concomitant]
     Indication: DEPRESSION
     Route: 065
     Dates: start: 19990101
  11. XANAX [Concomitant]
     Indication: SLEEP DISORDER
     Route: 065
     Dates: start: 19990101
  12. METOPROLOL [Concomitant]
     Indication: HYPERTENSION
     Route: 065

REACTIONS (20)
  - ACUTE MYOCARDIAL INFARCTION [None]
  - ANXIETY [None]
  - AORTIC ANEURYSM [None]
  - BLUE TOE SYNDROME [None]
  - BRADYCARDIA [None]
  - CHEST PAIN [None]
  - CORONARY ARTERY DISEASE [None]
  - CORONARY ARTERY OCCLUSION [None]
  - CORONARY ARTERY THROMBOSIS [None]
  - EMOTIONAL DISTRESS [None]
  - GASTRIC ULCER [None]
  - HYPERLIPIDAEMIA [None]
  - HYPERTENSION [None]
  - HYPOTENSION [None]
  - LIBIDO DECREASED [None]
  - MYOCARDIAL INFARCTION [None]
  - RASH ERYTHEMATOUS [None]
  - RASH MACULAR [None]
  - TACHYCARDIA [None]
  - THROMBOSIS [None]
